FAERS Safety Report 5407749-2 (Version None)
Quarter: 2007Q3

REPORT INFORMATION
  Report Type: 
  Country: None (occurrence: None)
  Receive Date: 20070713
  Receipt Date: 20070330
  Transmission Date: 20080115
  Serious: Yes (Life-Threatening, Hospitalization)
  Sender: FDA-Public Use
  Company Number: US-JNJFOC-20060505827

PATIENT
  Age: 43 Year
  Sex: Female
  Weight: 52.1637 kg

DRUGS (3)
  1. ORTHO EVRA [Suspect]
     Indication: CONTRACEPTION
     Dosage: TRANSDERMAL
     Route: 062
     Dates: start: 20021101, end: 20040516
  2. CALCIUM (CALCIUM) [Concomitant]
  3. NEXIUM [Concomitant]

REACTIONS (6)
  - DYSPEPSIA [None]
  - HEADACHE [None]
  - HYPERTENSION [None]
  - PULMONARY EMBOLISM [None]
  - VENA CAVA THROMBOSIS [None]
  - VENOUS THROMBOSIS [None]
